FAERS Safety Report 17388513 (Version 1)
Quarter: 2020Q1

REPORT INFORMATION
  Report Type: Spontaneous
  Country: US (occurrence: US)
  Receive Date: 20200207
  Receipt Date: 20200207
  Transmission Date: 20200409
  Serious: Yes (Hospitalization, Other)
  Sender: FDA-Public Use
  Company Number: US-PFIZER INC-2020052924

PATIENT
  Age: 74 Year
  Sex: Female

DRUGS (3)
  1. BOSUTINIB [Suspect]
     Active Substance: BOSUTINIB
     Dosage: 100 MG, DAILY
  2. BOSUTINIB [Suspect]
     Active Substance: BOSUTINIB
     Dosage: 200 MG, 1X/DAY, (200 MG/DAY DOSING)
  3. BOSUTINIB [Suspect]
     Active Substance: BOSUTINIB
     Indication: CHRONIC MYELOID LEUKAEMIA
     Dosage: 400 MG, DAILY

REACTIONS (3)
  - Renal impairment [Unknown]
  - Blood creatinine increased [Unknown]
  - Gastrointestinal haemorrhage [Unknown]
